FAERS Safety Report 16172810 (Version 2)
Quarter: 2019Q2

REPORT INFORMATION
  Report Type: Spontaneous
  Country: BR (occurrence: BR)
  Receive Date: 20190409
  Receipt Date: 20190423
  Transmission Date: 20190711
  Serious: Yes (Other)
  Sender: FDA-Public Use
  Company Number: BR-NODEN PHARMA DAC-NOD-2019-000040

PATIENT
  Sex: Male
  Weight: 73 kg

DRUGS (7)
  1. SINVASTATINA [Concomitant]
     Active Substance: SIMVASTATIN
     Indication: PRODUCT USED FOR UNKNOWN INDICATION
     Dosage: UNK
     Route: 065
  2. RASILEZ [Suspect]
     Active Substance: ALISKIREN
     Dosage: 1 UNK
     Route: 048
     Dates: start: 2011
  3. PROCORALAN [Concomitant]
     Active Substance: IVABRADINE
     Indication: PRODUCT USED FOR UNKNOWN INDICATION
     Dosage: UNK
     Route: 065
  4. CARDILOL                           /00984501/ [Concomitant]
     Indication: PRODUCT USED FOR UNKNOWN INDICATION
     Dosage: UNK
     Route: 065
  5. RASILEZ [Suspect]
     Active Substance: ALISKIREN
     Indication: HYPERTENSION
     Dosage: 1 DOSAGE FORM, QD (300 MG QD)
     Route: 065
     Dates: start: 2011
  6. VASTAREL [Concomitant]
     Active Substance: TRIMETAZIDINE DIHYDROCHLORIDE
     Indication: PRODUCT USED FOR UNKNOWN INDICATION
     Dosage: UNK
     Route: 065
  7. RASILEZ HCT [Suspect]
     Active Substance: ALISKIREN\HYDROCHLOROTHIAZIDE
     Indication: HYPERTENSION
     Dosage: 1 DOSAGE FORM, QD
     Route: 048
     Dates: start: 2009, end: 2011

REACTIONS (8)
  - Visual impairment [Unknown]
  - Rheumatoid arthritis [Unknown]
  - Swelling face [Unknown]
  - Joint stiffness [Unknown]
  - Astigmatism [Unknown]
  - Cough [Unknown]
  - Cataract [Not Recovered/Not Resolved]
  - Vision blurred [Unknown]

NARRATIVE: CASE EVENT DATE: 2015
